FAERS Safety Report 12091416 (Version 1)
Quarter: 2016Q1

REPORT INFORMATION
  Report Type: Spontaneous
  Country: CH (occurrence: SI)
  Receive Date: 20160218
  Receipt Date: 20160218
  Transmission Date: 20160526
  Serious: Yes (Other)
  Sender: FDA-Public Use
  Company Number: CH-LPDUSPRD-20160133

PATIENT
  Age: 44 Year
  Sex: Female
  Weight: 47 kg

DRUGS (1)
  1. FERINJECT [Suspect]
     Active Substance: FERRIC CARBOXYMALTOSE
     Dosage: ONE DOSE
     Route: 041

REACTIONS (3)
  - Abdominal distension [Unknown]
  - Eructation [Unknown]
  - Dysgeusia [Unknown]
